FAERS Safety Report 6579016-5 (Version None)
Quarter: 2010Q1

REPORT INFORMATION
  Report Type: 
  Country: None (occurrence: None)
  Receive Date: 20100212
  Receipt Date: 20100204
  Transmission Date: 20100710
  Serious: Yes (Hospitalization)
  Sender: FDA-Public Use
  Company Number: FR-KINGPHARMUSA00001-K201000127

PATIENT
  Age: 87 Year
  Sex: Female

DRUGS (6)
  1. ALTACE [Suspect]
     Dosage: 5 MG, BID
     Route: 048
     Dates: end: 20080915
  2. IMOVANE [Suspect]
     Dosage: 3.75 MG, QD
     Route: 048
     Dates: end: 20080915
  3. LANSOPRAZOLE [Suspect]
     Dosage: UNK
     Route: 048
     Dates: end: 20080301
  4. FUROSEMIDE [Suspect]
     Dosage: 60 MG, UNK
     Route: 048
  5. PREVISCAN [Suspect]
     Dosage: 20 MG, UNK
     Route: 048
  6. TIORFAN [Concomitant]

REACTIONS (4)
  - ASTHENIA [None]
  - DIARRHOEA [None]
  - GENERAL PHYSICAL HEALTH DETERIORATION [None]
  - WEIGHT DECREASED [None]
